FAERS Safety Report 5028311-X (Version None)
Quarter: 2006Q2

REPORT INFORMATION
  Report Type: 
  Country: None (occurrence: None)
  Receive Date: 20060613
  Receipt Date: 20060605
  Transmission Date: 20061013
  Serious: Yes (Hospitalization)
  Sender: FDA-Public Use
  Company Number: 06-NIP00095

PATIENT
  Sex: Male

DRUGS (1)
  1. NIPENT [Suspect]
     Indication: HAIRY CELL LEUKAEMIA
     Dosage: 4 CYCLES
     Dates: start: 20060321, end: 20060512

REACTIONS (11)
  - AGGRESSION [None]
  - ASTHENIA [None]
  - BONE PAIN [None]
  - CHILLS [None]
  - DEPRESSION [None]
  - HYPERHIDROSIS [None]
  - MYALGIA [None]
  - PYREXIA [None]
  - RASH [None]
  - RASH VESICULAR [None]
  - VASCULITIS [None]
